FAERS Safety Report 8132037-3 (Version None)
Quarter: 2012Q1

REPORT INFORMATION
  Report Type: 
  Country: None (occurrence: None)
  Receive Date: 20120207
  Receipt Date: 20120124
  Transmission Date: 20120608
  Serious: Yes (Hospitalization)
  Sender: FDA-Public Use
  Company Number: JPI-P-019482

PATIENT
  Age: 74 Year
  Sex: Male
  Weight: 66.6788 kg

DRUGS (11)
  1. FUROSEMIDE [Concomitant]
  2. ACETYLSALICYLIC ACID SRT [Concomitant]
  3. SIMVASTATIN [Concomitant]
  4. CLOPIDOGREL BISULFATE [Concomitant]
  5. SPIRONOLACTONE [Concomitant]
  6. TAMSULOSIN HCL [Concomitant]
  7. AMLODIPINE [Concomitant]
  8. XYREM [Suspect]
     Indication: CATAPLEXY
     Dosage: ORAL 4.5 GM (2.25 GM, 2 IN 1 D), ORAL
     Route: 048
     Dates: end: 20120118
  9. XYREM [Suspect]
     Indication: CATAPLEXY
     Dosage: ORAL 4.5 GM (2.25 GM, 2 IN 1 D), ORAL
     Route: 048
     Dates: start: 20120104
  10. CARVEDILOL [Concomitant]
  11. LISINOPRIL [Concomitant]

REACTIONS (2)
  - NO THERAPEUTIC RESPONSE [None]
  - DIVERTICULUM [None]
